FAERS Safety Report 9672243 (Version 1)
Quarter: 2013Q4

REPORT INFORMATION
  Report Type: Spontaneous
  Country: ES (occurrence: None)
  Receive Date: 20131105
  Receipt Date: 20131105
  Transmission Date: 20140711
  Serious: Yes (Death, Other)
  Sender: FDA-Public Use
  Company Number: FK201304797

PATIENT
  Age: 90 Year
  Sex: Female

DRUGS (3)
  1. FUROSEMIDE [Suspect]
     Indication: ACUTE MYOCARDIAL INFARCTION
     Route: 042
  2. FUROSEMIDE [Suspect]
     Indication: PULMONARY OEDEMA
     Route: 042
  3. RISPERIDONE (RISPERIDONE) [Suspect]
     Indication: HALLUCINATION, VISUAL

REACTIONS (2)
  - Pemphigoid [None]
  - Sepsis [None]
